FAERS Safety Report 8330360-0 (Version None)
Quarter: 2012Q2

REPORT INFORMATION
  Report Type: 
  Country: None (occurrence: None)
  Receive Date: 20120430
  Receipt Date: 20120424
  Transmission Date: 20120825
  Serious: Yes (Hospitalization)
  Sender: FDA-Public Use
  Company Number: B0798373A

PATIENT
  Age: 48 Year
  Sex: Male

DRUGS (4)
  1. AMILORIDE HYDROCHLORIDE [Concomitant]
  2. PROPRANOLOL HYDROCHLORIDE [Suspect]
     Indication: PRODUCT USED FOR UNKNOWN INDICATION
     Dosage: 40 MG / TWICE PER DAY
  3. SPIRONOLACTONE [Suspect]
     Indication: PRODUCT USED FOR UNKNOWN INDICATION
  4. ATENOLOL [Suspect]
     Indication: PRODUCT USED FOR UNKNOWN INDICATION

REACTIONS (4)
  - SCLEROSING ENCAPSULATING PERITONITIS [None]
  - HYPERKALAEMIA [None]
  - ASCITES [None]
  - GYNAECOMASTIA [None]
